FAERS Safety Report 12321606 (Version 1)
Quarter: 2016Q2

REPORT INFORMATION
  Report Type: Spontaneous
  Country: PE (occurrence: None)
  Receive Date: 20160429
  Receipt Date: 20160429
  Transmission Date: 20160815
  Serious: Yes (Other)
  Sender: FDA-Public Use
  Company Number: None

PATIENT
  Age: 30 Year
  Sex: Female
  Weight: 60 kg

DRUGS (6)
  1. CLONAZEPAN [Concomitant]
     Active Substance: CLONAZEPAM
  2. CRANBERRY 4200MG [Concomitant]
  3. QUETIAPINE 100MG SUN PHARMA [Suspect]
     Active Substance: QUETIAPINE
     Indication: DEPRESSION
     Dosage: 5 TABLET (S) ONCE A DAY TAKEN BY MOUTH
     Route: 048
  4. VITAMIN B12 [Concomitant]
     Active Substance: CYANOCOBALAMIN
  5. VITAMIN C [Concomitant]
     Active Substance: ASCORBIC ACID
  6. FOLIC ACID. [Concomitant]
     Active Substance: FOLIC ACID

REACTIONS (7)
  - Flatulence [None]
  - Dizziness [None]
  - Somnolence [None]
  - Haematoma [None]
  - Dehydration [None]
  - Disturbance in attention [None]
  - Asthenia [None]

NARRATIVE: CASE EVENT DATE: 20160426
